FAERS Safety Report 5716209-0 (Version None)
Quarter: 2008Q2

REPORT INFORMATION
  Report Type: 
  Country: None (occurrence: None)
  Receive Date: 20080424
  Receipt Date: 20080411
  Transmission Date: 20081010
  Serious: Yes (Hospitalization, Other)
  Sender: FDA-Public Use
  Company Number: GB-AVENTIS-200813245GDDC

PATIENT
  Age: 81 Year
  Sex: Male

DRUGS (1)
  1. EUGLUCON [Suspect]
     Route: 048

REACTIONS (4)
  - ANAEMIA [None]
  - MYELODYSPLASTIC SYNDROME [None]
  - PLATELET COUNT DECREASED [None]
  - WHITE BLOOD CELL COUNT DECREASED [None]
